FAERS Safety Report 25932075 (Version 1)
Quarter: 2025Q4

REPORT INFORMATION
  Report Type: Spontaneous
  Country: EU (occurrence: EU)
  Receive Date: 20251016
  Receipt Date: 20251016
  Transmission Date: 20260118
  Serious: Yes (Other)
  Sender: ASTELLAS
  Company Number: EU-ASTELLAS-2025-AER-056794

PATIENT
  Age: 76 Year
  Sex: Male

DRUGS (2)
  1. PADCEV [Suspect]
     Active Substance: ENFORTUMAB VEDOTIN-EJFV
     Indication: Transitional cell carcinoma
     Route: 065
     Dates: start: 20250813
  2. DENOSUMAB [Concomitant]
     Active Substance: DENOSUMAB
     Indication: Transitional cell carcinoma
     Route: 065

REACTIONS (1)
  - Hydronephrosis [Recovering/Resolving]

NARRATIVE: CASE EVENT DATE: 20250101
